FAERS Safety Report 9206091 (Version 2)
Quarter: 2013Q4

REPORT INFORMATION
  Report Type: Spontaneous
  Country: US (occurrence: US)
  Receive Date: 20130403
  Receipt Date: 20131104
  Transmission Date: 20140711
  Serious: Yes (Other)
  Sender: FDA-Public Use
  Company Number: US-BAYER-2013-039972

PATIENT
  Age: 32 Year
  Sex: Female

DRUGS (9)
  1. YAZ [Suspect]
     Indication: ACNE
     Dosage: UNK
  2. CELEXA [Concomitant]
     Dosage: 20 MG, UNK
     Route: 048
  3. DIAZEPAM [Concomitant]
     Dosage: 2 MG, UNK
     Route: 048
  4. FLUOXETINE [Concomitant]
     Dosage: 40 MG, UNK
  5. NITROGLYCERINE [Concomitant]
     Dosage: 0.4 MG, UNK
     Route: 060
  6. FUROSEMIDE [Concomitant]
     Dosage: 1 DF, QD
     Route: 048
  7. ESOMEPRAZOLE [Concomitant]
     Dosage: 1 Q DAY
     Route: 048
  8. PANTOPRAZOLE [Concomitant]
     Dosage: 40 MG 1 Q PM
     Route: 048
  9. METFORMIN [Concomitant]
     Dosage: START WITH 1 TAB BID [TIMES] 1 WK (INTERPRETED AS WEEK) THEN INCREASE TO 2 TABS BID
     Route: 048

REACTIONS (5)
  - Cholecystectomy [None]
  - Cholecystitis chronic [None]
  - Injury [None]
  - Pain [None]
  - Pain [None]
